FAERS Safety Report 4280275-2 (Version None)
Quarter: 2004Q1

REPORT INFORMATION
  Report Type: 
  Country: None (occurrence: None)
  Receive Date: 20040126
  Receipt Date: 20040114
  Transmission Date: 20041129
  Serious: Yes (Death)
  Sender: FDA-Public Use
  Company Number: 8002977

PATIENT
  Age: 83 Year
  Sex: Female

DRUGS (17)
  1. KEPPRA [Suspect]
     Indication: CONVULSION
     Dosage: 250 MG 2/D PO
     Route: 048
     Dates: start: 20030623, end: 20030803
  2. LANOXIN [Concomitant]
  3. ACIPHEX [Concomitant]
  4. HYDROCHLOROTHIAZIDE [Concomitant]
  5. CATAPRESS [Concomitant]
  6. KCL TAB [Concomitant]
  7. NORVASC [Concomitant]
  8. LOPRESSOR [Concomitant]
  9. LIPITOR [Concomitant]
  10. LORTAB [Concomitant]
  11. ANTIVERT [Concomitant]
  12. PLAVIX [Concomitant]
  13. ASPIRIN [Concomitant]
  14. COLACE [Concomitant]
  15. XANAX [Concomitant]
  16. DEPAKOTE [Concomitant]
  17. ATIVAN [Concomitant]

REACTIONS (11)
  - ABNORMAL BEHAVIOUR [None]
  - AGGRESSION [None]
  - ANGER [None]
  - COMA [None]
  - COMMUNICATION DISORDER [None]
  - DISORIENTATION [None]
  - HALLUCINATION [None]
  - INSOMNIA [None]
  - LOGORRHOEA [None]
  - MOOD SWINGS [None]
  - RESTLESSNESS [None]
